FAERS Safety Report 5975235-7 (Version None)
Quarter: 2008Q4

REPORT INFORMATION
  Report Type: 
  Country: None (occurrence: None)
  Receive Date: 20081128
  Receipt Date: 20081120
  Transmission Date: 20090506
  Serious: Yes (Disabling)
  Sender: FDA-Public Use
  Company Number: 2008-04245

PATIENT
  Age: 69 Year
  Sex: Female

DRUGS (1)
  1. VELCADE [Suspect]
     Indication: MULTIPLE MYELOMA
     Dosage: 1.3 MG/M2, UNK, UNKNOWN
     Dates: start: 20080701, end: 20081031

REACTIONS (7)
  - ABASIA [None]
  - HEARING IMPAIRED [None]
  - HYPOAESTHESIA [None]
  - NEUROPATHY PERIPHERAL [None]
  - PARAESTHESIA [None]
  - VISION BLURRED [None]
  - VISUAL ACUITY REDUCED [None]
